FAERS Safety Report 9403399 (Version 3)
Quarter: 2013Q3

REPORT INFORMATION
  Report Type: Spontaneous
  Country: JP (occurrence: JP)
  Receive Date: 20130716
  Receipt Date: 20130805
  Transmission Date: 20140515
  Serious: Yes (Death, Hospitalization)
  Sender: FDA-Public Use
  Company Number: JP-BAXTER-2013BAX026573

PATIENT
  Sex: Female

DRUGS (2)
  1. DIANEAL-N PD-4 2.5 PD SOLUTION [Suspect]
     Indication: RENAL FAILURE CHRONIC
     Route: 033
     Dates: end: 20130712
  2. EXTRANEAL PD SOLUTION [Suspect]
     Indication: RENAL FAILURE CHRONIC
     Route: 033
     Dates: end: 20130712

REACTIONS (2)
  - Death [Fatal]
  - Feeling abnormal [Recovering/Resolving]
